FAERS Safety Report 17692572 (Version 1)
Quarter: 2020Q2

REPORT INFORMATION
  Report Type: Spontaneous
  Country: US (occurrence: US)
  Receive Date: 20200421
  Receipt Date: 20200421
  Transmission Date: 20200714
  Serious: No
  Sender: FDA-Public Use
  Company Number: None

PATIENT
  Age: 58 Year
  Sex: Male
  Weight: 99 kg

DRUGS (5)
  1. ZINC. [Concomitant]
     Active Substance: ZINC
  2. VITAMIN D [Concomitant]
     Active Substance: VITAMIN D NOS
  3. VITAMIN C [Concomitant]
     Active Substance: ASCORBIC ACID
  4. FLOVENT HFA [Suspect]
     Active Substance: FLUTICASONE PROPIONATE
     Indication: PULMONARY FIBROSIS
     Dosage: ?          QUANTITY:1 PUFF(S);?
     Route: 048
     Dates: start: 20200403, end: 20200420
  5. 3250MG  NSAID [Concomitant]

REACTIONS (3)
  - Upper respiratory tract infection [None]
  - Throat irritation [None]
  - Stomatitis [None]

NARRATIVE: CASE EVENT DATE: 20200403
